FAERS Safety Report 14710148 (Version 1)
Quarter: 2018Q2

REPORT INFORMATION
  Report Type: Spontaneous
  Country: US (occurrence: US)
  Receive Date: 20180403
  Receipt Date: 20180403
  Transmission Date: 20180711
  Serious: No
  Sender: FDA-Public Use
  Company Number: US-BAUSCH-BL-2017-018926

PATIENT
  Sex: Male
  Weight: 124.85 kg

DRUGS (5)
  1. ALBUTEROL. [Concomitant]
     Active Substance: ALBUTEROL
     Indication: ASTHMA
     Dates: end: 2016
  2. PEVASTATIN [Concomitant]
     Indication: PRODUCT USED FOR UNKNOWN INDICATION
  3. METFORMIN [Concomitant]
     Active Substance: METFORMIN HYDROCHLORIDE
     Indication: PRODUCT USED FOR UNKNOWN INDICATION
  4. FLUNISOLIDE NASAL SOLUTION USP 0.025% [Suspect]
     Active Substance: FLUNISOLIDE
     Indication: SINUS DISORDER
     Dosage: 1 SPRAY IN EACH NOSTRIL WHEN NEEDED
     Route: 045
     Dates: start: 2000
  5. AEROBID [Concomitant]
     Active Substance: FLUNISOLIDE
     Indication: ASTHMA
     Dates: end: 2016

REACTIONS (3)
  - Nasal discomfort [Recovered/Resolved]
  - Feeling abnormal [Recovered/Resolved]
  - Anosmia [Not Recovered/Not Resolved]
